FAERS Safety Report 7559080-7 (Version None)
Quarter: 2011Q2

REPORT INFORMATION
  Report Type: 
  Country: None (occurrence: None)
  Receive Date: 20110621
  Receipt Date: 20110608
  Transmission Date: 20111010
  Serious: No
  Sender: FDA-Public Use
  Company Number: US-JNJFOC-20110605461

PATIENT
  Sex: Male

DRUGS (6)
  1. INVEGA [Suspect]
     Indication: SCHIZOAFFECTIVE DISORDER
     Route: 048
     Dates: start: 20110501
  2. INVEGA SUSTENNA [Suspect]
     Indication: SCHIZOAFFECTIVE DISORDER
     Route: 030
     Dates: start: 20110501
  3. ATIVAN [Concomitant]
     Indication: TREMOR
     Route: 048
     Dates: start: 20110608
  4. COGENTIN [Concomitant]
     Indication: TREMOR
     Route: 048
     Dates: start: 20110501, end: 20110608
  5. KLONOPIN [Concomitant]
     Indication: TREMOR
     Route: 048
     Dates: start: 20110501, end: 20110608
  6. INVEGA SUSTENNA [Suspect]
     Route: 030
     Dates: start: 20100101, end: 20110501

REACTIONS (7)
  - EXTRAPYRAMIDAL DISORDER [None]
  - AKATHISIA [None]
  - AGITATION [None]
  - ERECTILE DYSFUNCTION [None]
  - INAPPROPRIATE SCHEDULE OF DRUG ADMINISTRATION [None]
  - TREMOR [None]
  - PRODUCT QUALITY ISSUE [None]
